FAERS Safety Report 4907907-7 (Version None)
Quarter: 2006Q1

REPORT INFORMATION
  Report Type: 
  Country: None (occurrence: None)
  Receive Date: 20060210
  Receipt Date: 20060120
  Transmission Date: 20060701
  Serious: Yes (Other)
  Sender: FDA-Public Use
  Company Number: JP-SOLVAY-00306000276

PATIENT
  Age: 25293 Day
  Sex: Female

DRUGS (5)
  1. LUVOX [Suspect]
     Indication: DEPRESSION
     Dosage: DAILY DOSE: 50 MILLIGRAM(S)
     Route: 048
     Dates: start: 20051115, end: 20051124
  2. PRAVASTATIN [Concomitant]
     Indication: HYPERLIPIDAEMIA
     Dosage: DAILY DOSE: 10 MILLIGRAM(S)
     Route: 048
     Dates: start: 20041014
  3. MARZULENE-S [Concomitant]
     Indication: PROPHYLAXIS
     Dosage: DAILY DOSE: 1.5 GRAM(S)
     Route: 048
     Dates: start: 20041014
  4. MYSLEE [Concomitant]
     Indication: INSOMNIA
     Dosage: DAILY DOSE: 10 MILLIGRAM(S)
     Route: 048
     Dates: start: 20041014
  5. LENDORMIN [Concomitant]
     Indication: INSOMNIA
     Dosage: DAILY DOSE: .25 MILLIGRAM(S)
     Route: 048
     Dates: start: 20051115

REACTIONS (1)
  - INAPPROPRIATE ANTIDIURETIC HORMONE SECRETION [None]
